FAERS Safety Report 10540764 (Version 1)
Quarter: 2014Q4

REPORT INFORMATION
  Report Type: Spontaneous
  Country: GB (occurrence: None)
  Receive Date: 20141022
  Receipt Date: 20141022
  Transmission Date: 20150529
  Serious: Yes (Other)
  Sender: FDA-Public Use
  Company Number: GB-AIKEM-000747

PATIENT

DRUGS (7)
  1. CICLOSPORIN [Suspect]
     Active Substance: CYCLOSPORINE
     Indication: URTICARIA
  2. PREDNISOLONE. [Suspect]
     Active Substance: PREDNISOLONE
     Indication: URTICARIA
  3. FEXOFENADINE [Suspect]
     Active Substance: FEXOFENADINE\FEXOFENADINE HYDROCHLORIDE
  4. MYCOPHENOLATE MOFETIL. [Suspect]
     Active Substance: MYCOPHENOLATE MOFETIL
     Indication: URTICARIA
  5. DAPSONE. [Suspect]
     Active Substance: DAPSONE
     Indication: URTICARIA
  6. OMALIZUMAB [Suspect]
     Active Substance: OMALIZUMAB
     Indication: URTICARIA
  7. METHOTREXATE [Suspect]
     Active Substance: METHOTREXATE
     Indication: URTICARIA

REACTIONS (2)
  - Renal impairment [None]
  - Drug ineffective [None]
